FAERS Safety Report 11389615 (Version 1)
Quarter: 2015Q3

REPORT INFORMATION
  Report Type: Spontaneous
  Country: IT (occurrence: BR)
  Receive Date: 20150817
  Receipt Date: 20150817
  Transmission Date: 20151125
  Serious: Yes (Other)
  Sender: FDA-Public Use
  Company Number: BR-FRI-1000079011

PATIENT
  Sex: Female

DRUGS (1)
  1. NEBIVOLOL. [Suspect]
     Active Substance: NEBIVOLOL
     Route: 048

REACTIONS (1)
  - Nephrolithiasis [Unknown]
